FAERS Safety Report 8593200-0 (Version None)
Quarter: 2012Q3

REPORT INFORMATION
  Report Type: 
  Country: None (occurrence: None)
  Receive Date: 20120814
  Receipt Date: 20120801
  Transmission Date: 20120928
  Serious: Yes (Other)
  Sender: FDA-Public Use
  Company Number: JP-FRI-1000037588

PATIENT
  Age: 19 Year
  Sex: Female

DRUGS (2)
  1. LEXAPRO [Suspect]
     Dosage: 10 MG
     Route: 048
     Dates: start: 20111101
  2. LORAZEPAM [Concomitant]
     Dosage: 0.5 MG
     Route: 048

REACTIONS (1)
  - INTENTIONAL SELF-INJURY [None]
